FAERS Safety Report 6544216-7 (Version None)
Quarter: 2010Q1

REPORT INFORMATION
  Report Type: 
  Country: None (occurrence: None)
  Receive Date: 20100119
  Receipt Date: 20100119
  Transmission Date: 20100710
  Serious: Yes (Hospitalization)
  Sender: FDA-Public Use
  Company Number: None

PATIENT
  Sex: Female
  Weight: 56.8 kg

DRUGS (8)
  1. FLUOROURACIL [Suspect]
     Dosage: 4564 MG
     Dates: end: 20091228
  2. LEUCOVORIN CALCIUM [Suspect]
     Dosage: 652 MG
     Dates: end: 20091228
  3. ELOXATIN [Suspect]
     Dosage: 139 MG
     Dates: end: 20091228
  4. FERROUS SULFATE TAB [Concomitant]
  5. ACETAMINOPHEN AND HYDROCODONE BITARTRATE [Concomitant]
  6. KLOR-CON M20 [Concomitant]
  7. PHENERGAN HCL [Concomitant]
  8. TRIAMTERENE AND HYDROCHLOROTHIAZIDE [Concomitant]

REACTIONS (2)
  - BODY TEMPERATURE INCREASED [None]
  - NEUTROPHIL COUNT DECREASED [None]
